FAERS Safety Report 11146755 (Version 2)
Quarter: 2015Q2

REPORT INFORMATION
  Report Type: Spontaneous
  Country: US (occurrence: US)
  Receive Date: 20150528
  Receipt Date: 20150603
  Transmission Date: 20150821
  Serious: Yes (Hospitalization, Other)
  Sender: FDA-Public Use
  Company Number: US-LUNDBECK-DKLU1112821

PATIENT
  Age: 58 Year
  Sex: Female

DRUGS (5)
  1. LAMICTAL [Suspect]
     Active Substance: LAMOTRIGINE
     Indication: EPILEPSY
     Route: 048
     Dates: start: 2012
  2. GABAPENTIN. [Concomitant]
     Active Substance: GABAPENTIN
     Indication: SEIZURE
     Route: 048
     Dates: start: 201306, end: 201409
  3. ZONISAMIDE. [Concomitant]
     Active Substance: ZONISAMIDE
     Indication: EPILEPSY
     Dates: start: 201307, end: 201403
  4. KEPPRA [Concomitant]
     Active Substance: LEVETIRACETAM
     Indication: EPILEPSY
     Route: 048
     Dates: start: 201412
  5. ONFI [Suspect]
     Active Substance: CLOBAZAM
     Indication: EPILEPSY
     Route: 048
     Dates: start: 201403

REACTIONS (13)
  - Memory impairment [Unknown]
  - Scar [Unknown]
  - Myoclonic epilepsy [Unknown]
  - Fall [None]
  - Hypersomnia [Unknown]
  - Seizure [None]
  - Facial bones fracture [Recovered/Resolved]
  - Pruritus [Recovered/Resolved]
  - Ulcer [Unknown]
  - Nervous system disorder [Unknown]
  - Tooth loss [None]
  - Generalised tonic-clonic seizure [Unknown]
  - Injury [Unknown]

NARRATIVE: CASE EVENT DATE: 2014
